FAERS Safety Report 8446291-1 (Version None)
Quarter: 2012Q2

REPORT INFORMATION
  Report Type: 
  Country: None (occurrence: None)
  Receive Date: 20120618
  Receipt Date: 20120608
  Transmission Date: 20120825
  Serious: Yes (Other)
  Sender: FDA-Public Use
  Company Number: US-BAYER-2012-058133

PATIENT
  Sex: Female

DRUGS (2)
  1. ALEVE (CAPLET) [Suspect]
     Dosage: 2 DF, ONCE
     Route: 048
  2. CALCIUM CARBONATE [Concomitant]
     Dosage: 4 DF, ONCE

REACTIONS (2)
  - GASTRIC ULCER [None]
  - DYSPHAGIA [None]
